FAERS Safety Report 8447298-0 (Version None)
Quarter: 2012Q2

REPORT INFORMATION
  Report Type: 
  Country: None (occurrence: None)
  Receive Date: 20120619
  Receipt Date: 20120613
  Transmission Date: 20120825
  Serious: Yes (Other)
  Sender: FDA-Public Use
  Company Number: PHHY2012BR039690

PATIENT
  Sex: Female
  Weight: 72 kg

DRUGS (7)
  1. TEGRETOL [Suspect]
     Dosage: 2 DF, DAILY
     Route: 048
     Dates: start: 19860101
  2. HYDROCHLOROTHIAZIDE [Concomitant]
     Indication: HYPERTENSION
     Dosage: 1 DF, DAILY
     Route: 048
  3. TEGRETOL [Suspect]
     Indication: EPILEPSY
     Dosage: 4 DF, DAILY
     Route: 048
     Dates: start: 19860101
  4. METFORMIN HCL [Concomitant]
     Indication: DIABETES MELLITUS
     Dosage: 3 DF, DAILY
     Route: 048
  5. ENALAPRIL MALEATE [Concomitant]
     Indication: HYPERTENSION
     Dosage: 2 DF, DAILLY
     Route: 048
  6. TEGRETOL [Suspect]
     Dosage: 3 DF, DAILY
     Route: 048
     Dates: start: 19860101
  7. LOSARTAN POTASSIUM [Concomitant]
     Indication: HYPERTENSION
     Dosage: 1 DF, DAILY

REACTIONS (4)
  - HYPERTENSION [None]
  - PARAESTHESIA [None]
  - HYPERGLYCAEMIA [None]
  - DIZZINESS [None]
